FAERS Safety Report 7074935-8 (Version None)
Quarter: 2010Q4

REPORT INFORMATION
  Report Type: 
  Country: None (occurrence: None)
  Receive Date: 20101029
  Receipt Date: 20101021
  Transmission Date: 20110411
  Serious: Yes (Death, Hospitalization)
  Sender: FDA-Public Use
  Company Number: JP-AMGEN-KDC440637

PATIENT

DRUGS (16)
  1. PANITUMUMAB [Suspect]
     Indication: COLORECTAL CANCER
     Dosage: 6 MG/KG, Q2WK
     Route: 041
     Dates: start: 20100909
  2. OXALIPLATIN [Concomitant]
     Dosage: UNK UNK, Q2WK
     Route: 041
     Dates: start: 20100909
  3. FLUOROURACIL [Concomitant]
     Indication: COLORECTAL CANCER
     Dosage: UNK UNK, UNK
     Route: 040
     Dates: start: 20100909
  4. FLUOROURACIL [Concomitant]
     Dosage: UNK UNK, UNK
     Route: 041
     Dates: start: 20100909
  5. CALCIUM LEVOFOLINATE [Concomitant]
     Dosage: UNK UNK, UNK
     Route: 041
     Dates: start: 20100909
  6. CORTICOSTEROIDS [Concomitant]
     Indication: PROPHYLAXIS
     Route: 065
  7. LUPRAC [Concomitant]
     Route: 048
  8. ALDACTONE [Concomitant]
     Route: 048
  9. MUCOSTA [Concomitant]
     Route: 048
  10. LOXONIN [Concomitant]
     Route: 048
  11. PYDOXAL [Concomitant]
     Route: 048
  12. ASPARA POTASSIUM [Concomitant]
     Route: 048
  13. OXINORM [Concomitant]
     Route: 048
  14. OXYCONTIN [Concomitant]
     Route: 048
  15. MINOCYCLINE HCL [Concomitant]
     Route: 048
  16. HIRUDOID SOFT [Concomitant]
     Route: 062

REACTIONS (5)
  - COLORECTAL CANCER [None]
  - CONDITION AGGRAVATED [None]
  - HYPERKALAEMIA [None]
  - LOSS OF CONSCIOUSNESS [None]
  - METASTASES TO CENTRAL NERVOUS SYSTEM [None]
